FAERS Safety Report 5681155-8 (Version None)
Quarter: 2008Q1

REPORT INFORMATION
  Report Type: 
  Country: None (occurrence: None)
  Receive Date: 20080326
  Receipt Date: 20061025
  Transmission Date: 20080703
  Serious: No
  Sender: FDA-Public Use
  Company Number: PR-BAYER-PR-2006-032664

PATIENT
  Age: 25 Year
  Sex: Female

DRUGS (2)
  1. MIRENA [Suspect]
     Indication: CONTRACEPTION
     Route: 015
     Dates: start: 20051013
  2. NORVASC [Concomitant]
     Indication: HYPERTENSION

REACTIONS (1)
  - POLYMENORRHOEA [None]
